FAERS Safety Report 8208476-9 (Version None)
Quarter: 2012Q1

REPORT INFORMATION
  Report Type: 
  Country: None (occurrence: None)
  Receive Date: 20120227
  Receipt Date: 20111028
  Transmission Date: 20120608
  Serious: No
  Sender: FDA-Public Use
  Company Number: 335082

PATIENT
  Age: 59 Year
  Sex: Female

DRUGS (3)
  1. VICTOZA [Suspect]
     Indication: TYPE 2 DIABETES MELLITUS
     Dosage: SUBCUTANEOUS
     Route: 058
     Dates: start: 20110830
  2. LIPITOR [Concomitant]
  3. TRICOR /00090101/ (ADENOSINE) [Concomitant]

REACTIONS (4)
  - NAUSEA [None]
  - DIZZINESS [None]
  - BLOOD GLUCOSE DECREASED [None]
  - FATIGUE [None]
